FAERS Safety Report 25769832 (Version 2)
Quarter: 2025Q3

REPORT INFORMATION
  Report Type: Spontaneous
  Country: US (occurrence: US)
  Receive Date: 20250907
  Receipt Date: 20250924
  Transmission Date: 20251021
  Serious: Yes (Death, Life-Threatening, Hospitalization, Other)
  Sender: MDD OPERATIONS
  Company Number: US-MDD US Operations-MDD202508-003090

PATIENT
  Age: 71 Year
  Sex: Male

DRUGS (3)
  1. ONAPGO [Suspect]
     Active Substance: APOMORPHINE HYDROCHLORIDE
     Indication: Parkinson^s disease
     Dosage: 2.5 MG PER HOUR CONTINUOUS FOR 16 HOURS
     Dates: start: 20250604
  2. ONAPGO [Suspect]
     Active Substance: APOMORPHINE HYDROCHLORIDE
     Indication: On and off phenomenon
     Dosage: STRENGTH: 98MG/20ML, INFUSE CONTENTS OF 1 CARTRIDGE UNDER THE SKIN FOR 16 HOURS OR LESS EACH DAY. CO
     Route: 058
     Dates: start: 202505
  3. ONAPGO [Suspect]
     Active Substance: APOMORPHINE HYDROCHLORIDE
     Dosage: 2 MG PER HOUR CONTINUOUS FOR 16 HOURS.

REACTIONS (4)
  - Critical illness [Fatal]
  - General physical health deterioration [Unknown]
  - Fall [Unknown]
  - Cognitive disorder [Not Recovered/Not Resolved]
